FAERS Safety Report 19709321 (Version 1)
Quarter: 2021Q3

REPORT INFORMATION
  Report Type: Other
  Country: CN (occurrence: CN)
  Receive Date: 20210816
  Receipt Date: 20210816
  Transmission Date: 20211014
  Serious: Yes (Other)
  Sender: FDA-Public Use
  Company Number: CN-ROCHE-2888471

PATIENT

DRUGS (2)
  1. TACROLIMUS. [Suspect]
     Active Substance: TACROLIMUS
     Indication: GLOMERULONEPHRITIS MEMBRANOUS
     Route: 065
  2. RITUXIMAB. [Suspect]
     Active Substance: RITUXIMAB
     Indication: GLOMERULONEPHRITIS MEMBRANOUS
     Route: 042

REACTIONS (6)
  - Pneumonia [Unknown]
  - Diabetes mellitus [Unknown]
  - Hypersensitivity [Recovered/Resolved]
  - Urinary tract infection [Unknown]
  - Infection [Unknown]
  - Glucose tolerance impaired [Unknown]
